FAERS Safety Report 6475103-0 (Version None)
Quarter: 2009Q4

REPORT INFORMATION
  Report Type: 
  Country: None (occurrence: None)
  Receive Date: 20091204
  Receipt Date: 20090504
  Transmission Date: 20100525
  Serious: Yes (Hospitalization)
  Sender: FDA-Public Use
  Company Number: US-ELI_LILLY_AND_COMPANY-US200904000732

PATIENT
  Sex: Female
  Weight: 68.027 kg

DRUGS (8)
  1. BYETTA [Suspect]
     Indication: TYPE 2 DIABETES MELLITUS
     Dosage: 10 UG, 2/D
     Route: 058
     Dates: start: 20050101
  2. LIPITOR [Concomitant]
     Indication: BLOOD CHOLESTEROL ABNORMAL
     Dosage: 40 MG, UNK
     Route: 048
  3. LISINOPRIL [Concomitant]
     Route: 048
  4. AMLODIPINE [Concomitant]
     Route: 048
  5. METOPROLOL [Concomitant]
     Route: 048
  6. GLIMEPIRIDE [Concomitant]
     Indication: TYPE 2 DIABETES MELLITUS
  7. FISH OIL [Concomitant]
  8. ASPIRIN [Concomitant]
     Dosage: 81 MG, UNK
     Route: 048

REACTIONS (8)
  - FATIGUE [None]
  - FEELING COLD [None]
  - MIGRAINE [None]
  - RENAL CANCER [None]
  - VITAMIN B12 DECREASED [None]
  - VITAMIN C DECREASED [None]
  - VITAMIN D DECREASED [None]
  - WEIGHT DECREASED [None]
